FAERS Safety Report 21723506 (Version 1)
Quarter: 2022Q4

REPORT INFORMATION
  Report Type: Spontaneous
  Country: US (occurrence: US)
  Receive Date: 20221213
  Receipt Date: 20221213
  Transmission Date: 20230113
  Serious: Yes (Hospitalization)
  Sender: FDA-Public Use
  Company Number: US-ELI_LILLY_AND_COMPANY-US202212001471

PATIENT
  Sex: Female

DRUGS (1)
  1. HUMALOG [Suspect]
     Active Substance: INSULIN LISPRO
     Indication: Type 1 diabetes mellitus
     Dosage: 100 U, DAILY
     Route: 058
     Dates: start: 1982

REACTIONS (4)
  - Precancerous condition [Recovered/Resolved]
  - Blood cholesterol increased [Unknown]
  - Blood pressure increased [Unknown]
  - Cataract [Unknown]

NARRATIVE: CASE EVENT DATE: 20160101
